FAERS Safety Report 13516487 (Version 1)
Quarter: 2017Q2

REPORT INFORMATION
  Report Type: Report from Study
  Country: CN (occurrence: CN)
  Receive Date: 20170505
  Receipt Date: 20170505
  Transmission Date: 20170830
  Serious: Yes (Other)
  Sender: FDA-Public Use
  Company Number: PHHY2017CN064270

PATIENT
  Age: 31 Year
  Sex: Male

DRUGS (2)
  1. DIOVAN [Suspect]
     Active Substance: VALSARTAN
     Indication: RENAL HYPERTENSION
     Dosage: 1 DF, QD
     Route: 048
  2. DIOVAN [Suspect]
     Active Substance: VALSARTAN
     Indication: GLOMERULONEPHRITIS MEMBRANOUS

REACTIONS (8)
  - Nephrotic syndrome [Unknown]
  - Glomerulonephritis membranous [Unknown]
  - Urine abnormality [Recovering/Resolving]
  - Fatigue [Unknown]
  - Condition aggravated [Unknown]
  - Oedema [Recovering/Resolving]
  - Occult blood positive [Unknown]
  - Product use in unapproved indication [Unknown]

NARRATIVE: CASE EVENT DATE: 201508
